FAERS Safety Report 8004091-0 (Version None)
Quarter: 2011Q4

REPORT INFORMATION
  Report Type: 
  Country: None (occurrence: None)
  Receive Date: 20111222
  Receipt Date: 20111215
  Transmission Date: 20120403
  Serious: Yes (Disabling, Other)
  Sender: FDA-Public Use
  Company Number: US-ASTRAZENECA-2011SE76380

PATIENT
  Sex: Male

DRUGS (5)
  1. ATORVASTATIN [Concomitant]
  2. NEXIUM [Suspect]
     Indication: GASTROOESOPHAGEAL REFLUX DISEASE
     Route: 048
     Dates: start: 20060101
  3. CLOIPINE [Concomitant]
  4. CASODINE [Concomitant]
  5. MELOXICAM [Concomitant]

REACTIONS (2)
  - BACK INJURY [None]
  - INTERVERTEBRAL DISC DISPLACEMENT [None]
